FAERS Safety Report 6054406-8 (Version None)
Quarter: 2009Q1

REPORT INFORMATION
  Report Type: 
  Country: None (occurrence: None)
  Receive Date: 20090127
  Receipt Date: 20090115
  Transmission Date: 20090719
  Serious: Yes (Hospitalization)
  Sender: FDA-Public Use
  Company Number: FR-PFIZER INC-2009158864

PATIENT

DRUGS (11)
  1. XANAX [Suspect]
     Indication: ANXIETY
     Route: 048
     Dates: start: 20081013, end: 20081023
  2. TAVANIC [Suspect]
     Indication: LUNG DISORDER
     Route: 048
     Dates: start: 20081015, end: 20081022
  3. LOVENOX [Suspect]
     Indication: PROPHYLAXIS
     Route: 058
     Dates: start: 20081013, end: 20081023
  4. ACETAMINOPHEN [Suspect]
     Indication: PAIN
     Dosage: 1000 MG, 4X/DAY
     Route: 048
     Dates: start: 20081013, end: 20081026
  5. WARFARIN [Concomitant]
     Indication: PROPHYLAXIS
     Dosage: UNK
     Route: 048
     Dates: start: 20081013
  6. MACROGOL [Concomitant]
     Indication: CONSTIPATION
     Dosage: UNK
     Route: 048
     Dates: start: 20081013
  7. PANTOPRAZOLE [Concomitant]
     Indication: GASTROOESOPHAGEAL REFLUX DISEASE
     Dosage: UNK
     Route: 048
     Dates: start: 20081014
  8. TENORDATE [Concomitant]
     Dosage: UNK
  9. FUROSEMIDE [Concomitant]
  10. BENFLUOREX [Concomitant]
     Dosage: UNK
  11. PRAVASTATIN [Concomitant]
     Dosage: UNK

REACTIONS (1)
  - VASCULITIS [None]
